FAERS Safety Report 9940984 (Version 1)
Quarter: 2014Q1

REPORT INFORMATION
  Report Type: Spontaneous
  Country: US (occurrence: US)
  Receive Date: 20140303
  Receipt Date: 20140303
  Transmission Date: 20141002
  Serious: Yes (Other)
  Sender: FDA-Public Use
  Company Number: US-BRISTOL-MYERS SQUIBB COMPANY-20270575

PATIENT
  Age: 58 Year
  Sex: Female
  Weight: 113.38 kg

DRUGS (15)
  1. ABATACEPT SUBQ INJECTION 125MG/ML [Suspect]
     Indication: RHEUMATOID ARTHRITIS
     Dosage: STRENGTH :125 MG?THERAPY STOPPED ON AUG-2013 ?THERAPY RESTARTED ON 25-JAN-2014.
     Route: 058
     Dates: start: 201307
  2. ACTIVELLA [Concomitant]
  3. CELEBREX [Concomitant]
  4. CYCLOBENZAPRINE [Concomitant]
  5. CYMBALTA [Concomitant]
  6. FOLIC ACID [Concomitant]
  7. KRILL OIL [Concomitant]
  8. LORTAB [Concomitant]
  9. METHOTREXATE [Concomitant]
  10. PROTONIX [Concomitant]
  11. TYLENOL [Concomitant]
  12. VITAMIN B12 [Concomitant]
  13. VITAMIN D [Concomitant]
  14. XANAX [Concomitant]
  15. MVI [Concomitant]

REACTIONS (2)
  - Foot fracture [Unknown]
  - Headache [Not Recovered/Not Resolved]
